FAERS Safety Report 24284915 (Version 1)
Quarter: 2024Q3

REPORT INFORMATION
  Report Type: Spontaneous
  Country: US (occurrence: None)
  Receive Date: 20240831
  Receipt Date: 20240831
  Transmission Date: 20241017
  Serious: Yes (Hospitalization)
  Sender: Public
  Company Number: None

PATIENT
  Sex: Male
  Weight: 77 kg

DRUGS (8)
  1. CYCLOPHOSPHAMIDE [Suspect]
     Active Substance: CYCLOPHOSPHAMIDE
     Dates: end: 20240816
  2. CYTARABINE [Suspect]
     Active Substance: CYTARABINE
     Dates: end: 20240814
  3. SPRYCEL [Suspect]
     Active Substance: DASATINIB
     Dates: end: 20240829
  4. DEXAMETHASONE [Suspect]
     Active Substance: DEXAMETHASONE
     Dates: end: 20240821
  5. DOXORUBICIN HYDROCHLORIDE [Suspect]
     Active Substance: DOXORUBICIN HYDROCHLORIDE
     Dates: end: 20240817
  6. MESNA [Suspect]
     Active Substance: MESNA
     Dates: end: 20240815
  7. METHOTREXATE [Suspect]
     Active Substance: METHOTREXATE
     Dates: end: 20240822
  8. VINCRISTINE SULFATE [Suspect]
     Active Substance: VINCRISTINE SULFATE
     Dates: end: 20240823

REACTIONS (5)
  - Upper-airway cough syndrome [None]
  - Stomatitis [None]
  - Febrile neutropenia [None]
  - Streptococcus test positive [None]
  - Streptococcal sepsis [None]

NARRATIVE: CASE EVENT DATE: 20240829
